FAERS Safety Report 18995629 (Version 7)
Quarter: 2022Q1

REPORT INFORMATION
  Report Type: Report from Study
  Country: JP (occurrence: JP)
  Receive Date: 20210310
  Receipt Date: 20220316
  Transmission Date: 20220424
  Serious: Yes (Hospitalization)
  Sender: FDA-Public Use
  Company Number: JP-SA-2020SA318258

PATIENT
  Age: 55 Year
  Sex: Male
  Weight: 78 kg

DRUGS (89)
  1. ISATUXIMAB [Suspect]
     Active Substance: ISATUXIMAB
     Indication: Plasma cell myeloma
     Dosage: 10 MG/KG (DAY1, DAY15)
     Route: 041
     Dates: start: 20200730, end: 20201029
  2. ISATUXIMAB [Suspect]
     Active Substance: ISATUXIMAB
     Dosage: 10 MG/KG
     Route: 041
     Dates: start: 20180307, end: 20200709
  3. ISATUXIMAB [Suspect]
     Active Substance: ISATUXIMAB
     Dosage: 800 MG, QOW
     Route: 041
     Dates: start: 20201126, end: 20201210
  4. ISATUXIMAB [Suspect]
     Active Substance: ISATUXIMAB
     Dosage: DAILY DOSE: 780 MG
     Route: 041
     Dates: start: 20201224, end: 20201224
  5. ISATUXIMAB [Suspect]
     Active Substance: ISATUXIMAB
     Dosage: DAILY DOSE: 780 MG
     Route: 041
     Dates: start: 20210107, end: 20210107
  6. ISATUXIMAB [Suspect]
     Active Substance: ISATUXIMAB
     Dosage: 800 MG, QOW
     Route: 041
     Dates: start: 20210218, end: 20210304
  7. ISATUXIMAB [Suspect]
     Active Substance: ISATUXIMAB
     Dosage: 790 MG, QD
     Route: 041
     Dates: start: 20210318, end: 20210318
  8. ISATUXIMAB [Suspect]
     Active Substance: ISATUXIMAB
     Dosage: 790 MG, QD
     Route: 041
     Dates: start: 20210401, end: 20210401
  9. ISATUXIMAB [Suspect]
     Active Substance: ISATUXIMAB
     Dosage: 790 MG, QD
     Route: 041
     Dates: start: 20210415, end: 20210415
  10. ISATUXIMAB [Suspect]
     Active Substance: ISATUXIMAB
     Dosage: 780 MG, QD
     Route: 041
     Dates: start: 20210513, end: 20210513
  11. ISATUXIMAB [Suspect]
     Active Substance: ISATUXIMAB
     Dosage: 780 MG, QD
     Route: 041
     Dates: start: 20210527, end: 20210527
  12. ISATUXIMAB [Suspect]
     Active Substance: ISATUXIMAB
     Dosage: 770 MG, QD
     Route: 041
     Dates: start: 20210610, end: 20210610
  13. CARFILZOMIB [Suspect]
     Active Substance: CARFILZOMIB
     Indication: Plasma cell myeloma
     Dosage: 45 MG/M2
     Route: 065
     Dates: start: 20200730, end: 20201029
  14. CARFILZOMIB [Suspect]
     Active Substance: CARFILZOMIB
     Dosage: 45 MG/M2 (DAYS 1, 2, 8, 9, 15, 16)
     Route: 065
     Dates: start: 20180307, end: 20200709
  15. CARFILZOMIB [Suspect]
     Active Substance: CARFILZOMIB
     Dosage: 86 MG, QD
     Route: 065
     Dates: start: 20201126, end: 20201127
  16. CARFILZOMIB [Suspect]
     Active Substance: CARFILZOMIB
     Dosage: 86 MG, QD
     Route: 065
     Dates: start: 20201203, end: 20201204
  17. CARFILZOMIB [Suspect]
     Active Substance: CARFILZOMIB
     Dosage: 86 MG, QD
     Route: 065
     Dates: start: 20201210, end: 20201211
  18. CARFILZOMIB [Suspect]
     Active Substance: CARFILZOMIB
     Dosage: 86 MG, QD
     Route: 065
     Dates: start: 20201224, end: 20201225
  19. CARFILZOMIB [Suspect]
     Active Substance: CARFILZOMIB
     Dosage: 86 MG, QD
     Route: 065
     Dates: start: 20210107, end: 20210108
  20. CARFILZOMIB [Suspect]
     Active Substance: CARFILZOMIB
     Dosage: DAILY DOSE: 86 MG
     Route: 065
     Dates: start: 20210218, end: 20210218
  21. CARFILZOMIB [Suspect]
     Active Substance: CARFILZOMIB
     Dosage: DAILY DOSE: 86 MG
     Route: 065
     Dates: start: 20210304, end: 20210304
  22. CARFILZOMIB [Suspect]
     Active Substance: CARFILZOMIB
     Dosage: 86 MG, QD
     Route: 065
     Dates: start: 20210318, end: 20210318
  23. CARFILZOMIB [Suspect]
     Active Substance: CARFILZOMIB
     Dosage: 86 MG, QD
     Route: 065
     Dates: start: 20210319, end: 20210319
  24. CARFILZOMIB [Suspect]
     Active Substance: CARFILZOMIB
     Dosage: 86 MG, QD
     Route: 065
     Dates: start: 20210325, end: 20210325
  25. CARFILZOMIB [Suspect]
     Active Substance: CARFILZOMIB
     Dosage: 86 MG, QD
     Route: 065
     Dates: start: 20210401, end: 20210401
  26. CARFILZOMIB [Suspect]
     Active Substance: CARFILZOMIB
     Dosage: 86 MG, QD
     Route: 065
     Dates: start: 20210402, end: 20210402
  27. CARFILZOMIB [Suspect]
     Active Substance: CARFILZOMIB
     Dosage: 86 MG, QD
     Route: 065
     Dates: start: 20210415, end: 20210415
  28. CARFILZOMIB [Suspect]
     Active Substance: CARFILZOMIB
     Dosage: 86 MG, QD
     Route: 065
     Dates: start: 20210416, end: 20210416
  29. CARFILZOMIB [Suspect]
     Active Substance: CARFILZOMIB
     Dosage: 86 MG, QD
     Route: 065
     Dates: start: 20210422, end: 20210422
  30. CARFILZOMIB [Suspect]
     Active Substance: CARFILZOMIB
     Dosage: 86 MG, QD
     Route: 065
     Dates: start: 20210423, end: 20210423
  31. CARFILZOMIB [Suspect]
     Active Substance: CARFILZOMIB
     Dosage: 86 MG, QD
     Route: 065
     Dates: start: 20210430, end: 20210430
  32. CARFILZOMIB [Suspect]
     Active Substance: CARFILZOMIB
     Dosage: 86 MG, QD
     Route: 065
     Dates: start: 20210513, end: 20210513
  33. CARFILZOMIB [Suspect]
     Active Substance: CARFILZOMIB
     Dosage: 86 MG, QD
     Route: 065
     Dates: start: 20210514, end: 20210514
  34. CARFILZOMIB [Suspect]
     Active Substance: CARFILZOMIB
     Dosage: 86 MG, QD
     Route: 065
     Dates: start: 20210520, end: 20210520
  35. CARFILZOMIB [Suspect]
     Active Substance: CARFILZOMIB
     Dosage: 86 MG, QD
     Route: 065
     Dates: start: 20210521, end: 20210521
  36. CARFILZOMIB [Suspect]
     Active Substance: CARFILZOMIB
     Dosage: 86 MG, QD
     Route: 065
     Dates: start: 20210527, end: 20210527
  37. CARFILZOMIB [Suspect]
     Active Substance: CARFILZOMIB
     Dosage: 86 MG, QD
     Route: 065
     Dates: start: 20210528, end: 20210528
  38. CARFILZOMIB [Suspect]
     Active Substance: CARFILZOMIB
     Dosage: 85 MG, QD
     Route: 065
     Dates: start: 20210610, end: 20210610
  39. CARFILZOMIB [Suspect]
     Active Substance: CARFILZOMIB
     Dosage: 85 MG, QD
     Route: 065
     Dates: start: 20210611, end: 20210611
  40. CARFILZOMIB [Suspect]
     Active Substance: CARFILZOMIB
     Dosage: 85 MG, QD
     Route: 065
     Dates: start: 20210617, end: 20210617
  41. CARFILZOMIB [Suspect]
     Active Substance: CARFILZOMIB
     Dosage: 68 MG, QD
     Route: 065
     Dates: start: 20210618, end: 20210618
  42. DEXAMETHASONE [Suspect]
     Active Substance: DEXAMETHASONE
     Indication: Plasma cell myeloma
     Dosage: 12 MG(DAY1,2,8,9,15,16)
     Route: 042
     Dates: start: 20180307, end: 20200709
  43. DEXAMETHASONE [Suspect]
     Active Substance: DEXAMETHASONE
     Dosage: 12 MG
     Route: 048
     Dates: start: 20180307, end: 20200709
  44. DEXAMETHASONE [Suspect]
     Active Substance: DEXAMETHASONE
     Dosage: DOSE DECREASED TO 8 MG
     Route: 065
     Dates: start: 20200730, end: 20201029
  45. DEXAMETHASONE [Suspect]
     Active Substance: DEXAMETHASONE
     Dosage: DAILY DOSE: 12 MG
     Route: 042
     Dates: start: 20200918
  46. DEXAMETHASONE [Suspect]
     Active Substance: DEXAMETHASONE
     Dosage: 12 MG, QD
     Route: 048
     Dates: start: 20200924, end: 20200925
  47. DEXAMETHASONE [Suspect]
     Active Substance: DEXAMETHASONE
     Dosage: DAILY DOSE: 12 MG
     Route: 042
     Dates: start: 20201016
  48. DEXAMETHASONE [Suspect]
     Active Substance: DEXAMETHASONE
     Dosage: 12 MG, QD
     Route: 048
     Dates: start: 20201022, end: 20201023
  49. DEXAMETHASONE [Suspect]
     Active Substance: DEXAMETHASONE
     Dosage: 8 MG, QD
     Route: 042
     Dates: start: 20201126, end: 20201127
  50. DEXAMETHASONE [Suspect]
     Active Substance: DEXAMETHASONE
     Dosage: 8 MG, QD
     Route: 042
     Dates: start: 20201203, end: 20201204
  51. DEXAMETHASONE [Suspect]
     Active Substance: DEXAMETHASONE
     Dosage: 8 MG, QD
     Route: 042
     Dates: start: 20201210, end: 20201211
  52. DEXAMETHASONE [Suspect]
     Active Substance: DEXAMETHASONE
     Dosage: 8 MG, QD
     Route: 048
     Dates: start: 20201217, end: 20201218
  53. DEXAMETHASONE [Suspect]
     Active Substance: DEXAMETHASONE
     Dosage: 4 MG, QD
     Route: 042
     Dates: start: 20201224, end: 20201225
  54. DEXAMETHASONE [Suspect]
     Active Substance: DEXAMETHASONE
     Dosage: DAILY DOSE: 4 MG
     Route: 042
     Dates: start: 20210107, end: 20210108
  55. DEXAMETHASONE [Suspect]
     Active Substance: DEXAMETHASONE
     Dosage: DAILY DOSE: 4 MG
     Route: 048
     Dates: start: 20210114, end: 20210114
  56. DEXAMETHASONE [Suspect]
     Active Substance: DEXAMETHASONE
     Dosage: DAILY DOSE: 4 MG
     Route: 048
     Dates: start: 20210115, end: 20210115
  57. FEBUXOSTAT [Concomitant]
     Active Substance: FEBUXOSTAT
     Indication: Hyperuricaemia
     Dosage: 1 DF, QD
     Route: 048
  58. MIYA-BM [Concomitant]
     Active Substance: CLOSTRIDIUM BUTYRICUM SPORES STRAIN M-55
     Indication: Constipation prophylaxis
     Dosage: 1 DF, TID
     Route: 048
  59. REBAMIPIDE [Concomitant]
     Active Substance: REBAMIPIDE
     Indication: Gastritis prophylaxis
     Dosage: 1 DF, TID
     Route: 048
  60. NEXIUM [Concomitant]
     Active Substance: ESOMEPRAZOLE MAGNESIUM
     Indication: Gastritis prophylaxis
     Dosage: 1 DF, QD
     Route: 048
  61. SULFAMETHOXAZOLE\TRIMETHOPRIM [Concomitant]
     Active Substance: SULFAMETHOXAZOLE\TRIMETHOPRIM
     Indication: Infection prophylaxis
     Dosage: 1 DF, BID
     Route: 048
     Dates: start: 20180308
  62. ACYCLOVIR [Concomitant]
     Active Substance: ACYCLOVIR
     Indication: Infection prophylaxis
     Dosage: 1 DF, QD
     Route: 048
     Dates: start: 20180817
  63. AMLODIPINE BESYLATE [Concomitant]
     Active Substance: AMLODIPINE BESYLATE
     Indication: Hypertension
     Dosage: 3 DF, QD
     Route: 048
     Dates: start: 20200213
  64. ACETAMINOPHEN [Concomitant]
     Active Substance: ACETAMINOPHEN
     Indication: Prophylaxis
     Dosage: 800 MG/DAY
     Route: 048
     Dates: start: 20200806, end: 20200806
  65. ACETAMINOPHEN [Concomitant]
     Active Substance: ACETAMINOPHEN
     Dosage: 800 MG/DAY
     Route: 048
     Dates: start: 20200604, end: 20200604
  66. ACETAMINOPHEN [Concomitant]
     Active Substance: ACETAMINOPHEN
     Dosage: 800 MG/DAY
     Route: 048
     Dates: start: 20200618, end: 20200618
  67. ACETAMINOPHEN [Concomitant]
     Active Substance: ACETAMINOPHEN
     Dosage: 800 MG/DAY
     Route: 042
     Dates: start: 20200709, end: 20200709
  68. FAMOTIDINE [Concomitant]
     Active Substance: FAMOTIDINE
     Indication: Prophylaxis
     Dosage: 20 MG/DAY
     Route: 042
     Dates: start: 20200806, end: 20200806
  69. FAMOTIDINE [Concomitant]
     Active Substance: FAMOTIDINE
     Dosage: 20 MG/DAY
     Route: 042
     Dates: start: 20200604, end: 20200604
  70. FAMOTIDINE [Concomitant]
     Active Substance: FAMOTIDINE
     Dosage: 20 MG/DAY
     Route: 042
     Dates: start: 20200618, end: 20200618
  71. FAMOTIDINE [Concomitant]
     Active Substance: FAMOTIDINE
     Dosage: 20 MG/DAY
     Route: 042
     Dates: start: 20200709, end: 20200709
  72. DEXCHLORPHENIRAMINE MALEATE [Concomitant]
     Active Substance: DEXCHLORPHENIRAMINE MALEATE
     Indication: Prophylaxis
     Dosage: 5 MG/DAY
     Route: 042
     Dates: start: 20200806, end: 20200806
  73. DEXCHLORPHENIRAMINE MALEATE [Concomitant]
     Active Substance: DEXCHLORPHENIRAMINE MALEATE
     Dosage: 20 MG/DAY
     Route: 042
     Dates: start: 20200604, end: 20200604
  74. DEXCHLORPHENIRAMINE MALEATE [Concomitant]
     Active Substance: DEXCHLORPHENIRAMINE MALEATE
     Dosage: 5.0 MG/DAY
     Route: 042
     Dates: start: 20200618, end: 20200618
  75. DEXCHLORPHENIRAMINE MALEATE [Concomitant]
     Active Substance: DEXCHLORPHENIRAMINE MALEATE
     Dosage: 20 MG/DAY
     Route: 042
     Dates: start: 20200709, end: 20200709
  76. DEXCHLORPHENIRAMINE MALEATE [Concomitant]
     Active Substance: DEXCHLORPHENIRAMINE MALEATE
     Dosage: 5 MG, QOW
     Route: 042
     Dates: start: 20201126, end: 20201224
  77. DEXCHLORPHENIRAMINE MALEATE [Concomitant]
     Active Substance: DEXCHLORPHENIRAMINE MALEATE
     Dosage: 5 MG, QOW
     Route: 042
     Dates: start: 20201015, end: 20201029
  78. DEXCHLORPHENIRAMINE MALEATE [Concomitant]
     Active Substance: DEXCHLORPHENIRAMINE MALEATE
     Dosage: 5 MG, QOW
     Route: 042
     Dates: start: 20201126, end: 20210107
  79. DEXCHLORPHENIRAMINE MALEATE [Concomitant]
     Active Substance: DEXCHLORPHENIRAMINE MALEATE
     Dosage: 5.0 MG/DAY
     Route: 042
     Dates: start: 20210304, end: 20210304
  80. SHAKUYAKUKANZOTO [Concomitant]
     Active Substance: HERBALS
     Indication: Product used for unknown indication
     Dosage: UNK
     Route: 048
     Dates: start: 20190516
  81. HUMAN IMMUNOGLOBULIN G [Concomitant]
     Active Substance: HUMAN IMMUNOGLOBULIN G
     Indication: Product used for unknown indication
     Dosage: UNK
     Route: 042
     Dates: start: 20200807, end: 20200807
  82. HUMAN IMMUNOGLOBULIN G [Concomitant]
     Active Substance: HUMAN IMMUNOGLOBULIN G
     Dosage: UNK
     Route: 042
     Dates: start: 20200605, end: 20200605
  83. HUMAN IMMUNOGLOBULIN G [Concomitant]
     Active Substance: HUMAN IMMUNOGLOBULIN G
     Dosage: UNK
     Route: 042
     Dates: start: 20200702, end: 20200702
  84. HUMAN IMMUNOGLOBULIN G [Concomitant]
     Active Substance: HUMAN IMMUNOGLOBULIN G
     Dosage: UNK
     Route: 042
     Dates: start: 20201111, end: 20201111
  85. HUMAN IMMUNOGLOBULIN G [Concomitant]
     Active Substance: HUMAN IMMUNOGLOBULIN G
     Dosage: UNK
     Route: 042
     Dates: start: 20201225, end: 20201225
  86. HUMAN IMMUNOGLOBULIN G [Concomitant]
     Active Substance: HUMAN IMMUNOGLOBULIN G
     Dosage: UNK
     Route: 042
     Dates: start: 20210125, end: 20210125
  87. HUMAN IMMUNOGLOBULIN G [Concomitant]
     Active Substance: HUMAN IMMUNOGLOBULIN G
     Dosage: UNK
     Route: 042
     Dates: start: 20210219, end: 20210219
  88. HUMAN IMMUNOGLOBULIN G [Concomitant]
     Active Substance: HUMAN IMMUNOGLOBULIN G
     Dosage: UNK
     Route: 042
     Dates: start: 20210121, end: 20210121
  89. ATORVASTATIN CALCIUM [Concomitant]
     Active Substance: ATORVASTATIN CALCIUM
     Indication: Hyperlipidaemia
     Dosage: 1 DF, QD
     Route: 048
     Dates: start: 20200903

REACTIONS (2)
  - Cytomegalovirus viraemia [Recovered/Resolved]
  - Cytomegalovirus viraemia [Recovered/Resolved]

NARRATIVE: CASE EVENT DATE: 20200820
